FAERS Safety Report 7767983-3 (Version None)
Quarter: 2011Q3

REPORT INFORMATION
  Report Type: 
  Country: None (occurrence: None)
  Receive Date: 20110922
  Receipt Date: 20101008
  Transmission Date: 20111222
  Serious: No
  Sender: FDA-Public Use
  Company Number: US-ASTRAZENECA-2010SE47768

PATIENT
  Sex: Female
  Weight: 74.8 kg

DRUGS (4)
  1. LYRICA [Concomitant]
     Indication: NERVE INJURY
     Route: 065
  2. TRAMADOL HCL [Concomitant]
     Indication: NERVE INJURY
     Route: 065
  3. VICODIN [Concomitant]
     Indication: PAIN
     Route: 065
  4. SEROQUEL [Suspect]
     Indication: NERVE INJURY
     Dosage: 100 MG, 2-3 TABLETS AT NIGHT
     Route: 048

REACTIONS (1)
  - THERAPEUTIC RESPONSE UNEXPECTED [None]
